FAERS Safety Report 7376866-2 (Version None)
Quarter: 2011Q1

REPORT INFORMATION
  Report Type: 
  Country: None (occurrence: None)
  Receive Date: 20110326
  Receipt Date: 20110311
  Transmission Date: 20110831
  Serious: Yes (Other)
  Sender: FDA-Public Use
  Company Number: IE-AMGEN-IRLSP2011014020

PATIENT
  Sex: Female
  Weight: 65 kg

DRUGS (4)
  1. NPLATE [Suspect]
     Dosage: 1 A?G/KG, UNK
     Dates: end: 20110216
  2. MORPHINE [Concomitant]
  3. NPLATE [Suspect]
     Indication: IDIOPATHIC THROMBOCYTOPENIC PURPURA
     Dosage: 1 A?G/KG, QWK
     Dates: start: 20101020
  4. IVIGLOB-EX [Concomitant]

REACTIONS (2)
  - THERAPEUTIC RESPONSE DECREASED [None]
  - RHEUMATOID ARTHRITIS [None]
